FAERS Safety Report 18065255 (Version 1)
Quarter: 2020Q3

REPORT INFORMATION
  Report Type: Spontaneous
  Country: GB (occurrence: GB)
  Receive Date: 20200724
  Receipt Date: 20200724
  Transmission Date: 20201103
  Serious: Yes (Hospitalization)
  Sender: FDA-Public Use
  Company Number: GB-ACCORD-191931

PATIENT
  Age: 88 Year
  Sex: Female

DRUGS (6)
  1. BISOPROLOL [Concomitant]
     Active Substance: BISOPROLOL
  2. APIXABAN [Concomitant]
     Active Substance: APIXABAN
  3. FUROSEMIDE. [Suspect]
     Active Substance: FUROSEMIDE
     Indication: PRODUCT USED FOR UNKNOWN INDICATION
     Route: 048
     Dates: end: 20200706
  4. CALCICHEW [Concomitant]
     Active Substance: CALCIUM CARBONATE
  5. LEVOTHYROXINE. [Concomitant]
     Active Substance: LEVOTHYROXINE
  6. NOVOMIX [Concomitant]
     Active Substance: INSULIN ASPART

REACTIONS (2)
  - Renal impairment [Recovering/Resolving]
  - Hypotension [Recovering/Resolving]
